FAERS Safety Report 8965952 (Version 1)
Quarter: 2012Q4

REPORT INFORMATION
  Report Type: 
  Country: US (occurrence: US)
  Receive Date: 20121217
  Receipt Date: 20121217
  Transmission Date: 20130627
  Serious: No
  Sender: FDA-Public Use
  Company Number: US-ABBOTT-12P-163-0893364-00

PATIENT
  Age: 63 Year
  Sex: Female
  Weight: 79.9 kg

DRUGS (10)
  1. TRILIPIX [Suspect]
     Indication: BLOOD TRIGLYCERIDES
  2. LIPITOR [Suspect]
     Indication: PRODUCT USED FOR UNKNOWN INDICATION
     Dates: start: 201111, end: 20111223
  3. HYDROCHLOROTHIAZIDE W/LOSARTAN [Concomitant]
     Indication: PRODUCT USED FOR UNKNOWN INDICATION
     Dosage: 100/25
  4. HYDROCHLOROTHIAZIDE [Concomitant]
     Indication: HYPERTENSION
  5. BISOPROLOL W/HYDROCHLOROTHIAZIDE [Concomitant]
     Indication: HYPERTENSION
     Dosage: 10/6.25
  6. AMLODIPINE BESYLATE [Concomitant]
     Indication: HYPERTENSION
  7. NEXIUM [Concomitant]
     Indication: DYSPEPSIA
  8. CITALOPRAM [Concomitant]
     Indication: ANXIETY
  9. CALCIUM 600+VIT D [Concomitant]
     Indication: PRODUCT USED FOR UNKNOWN INDICATION
  10. MVI [Concomitant]
     Indication: PRODUCT USED FOR UNKNOWN INDICATION

REACTIONS (2)
  - Medication residue [Not Recovered/Not Resolved]
  - Diarrhoea [Recovered/Resolved]
